FAERS Safety Report 13260374 (Version 2)
Quarter: 2017Q1

REPORT INFORMATION
  Report Type: Spontaneous
  Country: US (occurrence: US)
  Receive Date: 20170222
  Receipt Date: 20170317
  Transmission Date: 20170428
  Serious: No
  Sender: FDA-Public Use
  Company Number: US-BAYER-2017-033949

PATIENT
  Age: 69 Year
  Sex: Female
  Weight: 94 kg

DRUGS (4)
  1. POTASSIUM [Concomitant]
     Active Substance: POTASSIUM
  2. MIRALAX [Suspect]
     Active Substance: POLYETHYLENE GLYCOL 3350
     Dosage: 1 DF, UNK
     Route: 048
     Dates: start: 201510
  3. CALCIUM [Concomitant]
     Active Substance: CALCIUM
  4. VITAMIIN C [Concomitant]
     Active Substance: ASCORBIC ACID

REACTIONS (11)
  - Oral discomfort [Not Recovered/Not Resolved]
  - Product use issue [Unknown]
  - Product difficult to swallow [Unknown]
  - Abdominal distension [Recovered/Resolved]
  - Dry eye [Recovered/Resolved]
  - Abdominal distension [Recovered/Resolved]
  - Dry mouth [Not Recovered/Not Resolved]
  - Wrong technique in product usage process [Unknown]
  - Product odour abnormal [Recovering/Resolving]
  - Vulvovaginal dryness [Unknown]
  - Respiration abnormal [Unknown]

NARRATIVE: CASE EVENT DATE: 201510
